FAERS Safety Report 5673674-5 (Version None)
Quarter: 2008Q1

REPORT INFORMATION
  Report Type: 
  Country: None (occurrence: None)
  Receive Date: 20080319
  Receipt Date: 20080312
  Transmission Date: 20080703
  Serious: Yes (Death, Other)
  Sender: FDA-Public Use
  Company Number: US-PFIZER INC-2006121926

PATIENT
  Sex: Male

DRUGS (3)
  1. CELEBREX [Suspect]
     Indication: PAIN
     Dates: start: 20030101, end: 20030512
  2. BEXTRA [Suspect]
     Indication: PAIN
     Dates: start: 20030101, end: 20030512
  3. VIOXX [Suspect]
     Indication: ARTHRITIS
     Dates: start: 19991201, end: 20030512

REACTIONS (1)
  - MYOCARDIAL INFARCTION [None]
